FAERS Safety Report 6401636-9 (Version None)
Quarter: 2009Q4

REPORT INFORMATION
  Report Type: 
  Country: None (occurrence: None)
  Receive Date: 20091009
  Receipt Date: 20091009
  Transmission Date: 20100525
  Serious: Yes (Disabling)
  Sender: FDA-Public Use
  Company Number: None

PATIENT
  Age: 34 Year
  Sex: Male
  Weight: 68 kg

DRUGS (1)
  1. DOXORUBICIN HCL [Suspect]
     Indication: KAPOSI'S SARCOMA
     Dosage: 30MG ONCE IV   1 DOSE
     Route: 042
     Dates: start: 20090723, end: 20090723

REACTIONS (2)
  - BACK PAIN [None]
  - MUSCLE SPASMS [None]
